FAERS Safety Report 5055342-6 (Version None)
Quarter: 2006Q3

REPORT INFORMATION
  Report Type: 
  Country: None (occurrence: None)
  Receive Date: 20060714
  Receipt Date: 20060628
  Transmission Date: 20061208
  Serious: Yes (Death, Hospitalization)
  Sender: FDA-Public Use
  Company Number: BR-2006-017096

PATIENT
  Age: 38 Year
  Sex: Female

DRUGS (1)
  1. BETASERON [Suspect]
     Indication: MULTIPLE SCLEROSIS
     Dosage: UNK MIU, 3X/WEEK, SUBCUTANEOUS
     Route: 058
     Dates: start: 20050701, end: 20060616

REACTIONS (3)
  - ABASIA [None]
  - BRONCHOPNEUMONIA [None]
  - RESPIRATORY FAILURE [None]
